FAERS Safety Report 14102186 (Version 1)
Quarter: 2017Q4

REPORT INFORMATION
  Report Type: Spontaneous
  Country: US (occurrence: US)
  Receive Date: 20171018
  Receipt Date: 20171018
  Transmission Date: 20180321
  Serious: No
  Sender: FDA-Public Use
  Company Number: US-BAYER-2017-183907

PATIENT
  Age: 44 Year
  Sex: Male

DRUGS (1)
  1. CIPRO [Suspect]
     Active Substance: CIPROFLOXACIN HYDROCHLORIDE
     Indication: PROSTATITIS
     Dates: start: 2004, end: 2015

REACTIONS (12)
  - Myalgia [Recovering/Resolving]
  - Disturbance in attention [Recovering/Resolving]
  - Mood swings [Recovering/Resolving]
  - Insomnia [Recovering/Resolving]
  - Tendon pain [Not Recovered/Not Resolved]
  - Paraesthesia [Recovering/Resolving]
  - Abdominal distension [Recovered/Resolved with Sequelae]
  - Abdominal discomfort [Recovered/Resolved with Sequelae]
  - Dizziness [Not Recovered/Not Resolved]
  - Anxiety [Recovering/Resolving]
  - Head titubation [Recovered/Resolved with Sequelae]
  - Stress [Recovering/Resolving]

NARRATIVE: CASE EVENT DATE: 2004
